FAERS Safety Report 14063939 (Version 2)
Quarter: 2018Q1

REPORT INFORMATION
  Report Type: Spontaneous
  Country: AU (occurrence: AU)
  Receive Date: 20171009
  Receipt Date: 20180308
  Transmission Date: 20180508
  Serious: Yes (Death, Other)
  Sender: FDA-Public Use
  Company Number: PHHY2017AU147719

PATIENT
  Age: 61 Year
  Sex: Male

DRUGS (17)
  1. VORICONAZOLE. [Suspect]
     Active Substance: VORICONAZOLE
     Indication: PRODUCT USED FOR UNKNOWN INDICATION
     Dosage: UNK
     Route: 065
     Dates: start: 20120224
  2. IDARUBICIN [Suspect]
     Active Substance: IDARUBICIN
     Indication: ACUTE MYELOID LEUKAEMIA
     Dosage: 12 MG/M2, QD (DAY 1 TO 3)
     Route: 042
     Dates: start: 20120224
  3. VORICONAZOLE. [Suspect]
     Active Substance: VORICONAZOLE
     Dosage: UNK
     Route: 065
     Dates: start: 20120329
  4. AMSACRINE [Suspect]
     Active Substance: AMSACRINE
     Indication: ACUTE MYELOID LEUKAEMIA
     Dosage: 100 MG/M2, QD (DAY 1 TO 3)
     Route: 042
     Dates: start: 20131002
  5. POSACONAZOLE [Suspect]
     Active Substance: POSACONAZOLE
     Indication: PRODUCT USED FOR UNKNOWN INDICATION
     Dosage: UNK
     Route: 065
     Dates: start: 20120224
  6. CYTARABINE. [Suspect]
     Active Substance: CYTARABINE
     Dosage: 1000 MG/M2, BID (DAY 1, 3, 5)
     Route: 042
     Dates: start: 20120501
  7. G-CSF [Suspect]
     Active Substance: GRANULOCYTE COLONY-STIMULATING FACTOR NOS
     Indication: ACUTE MYELOID LEUKAEMIA
     Dosage: 300 UG, QD (DAY 0 TO 6)
     Route: 058
     Dates: start: 20131002
  8. IDARUBICIN [Suspect]
     Active Substance: IDARUBICIN
     Dosage: 12 MG/M2, QD (DAY 1 TO 2)
     Route: 042
     Dates: start: 20120501
  9. CYTARABINE. [Suspect]
     Active Substance: CYTARABINE
     Indication: ACUTE MYELOID LEUKAEMIA
     Dosage: 100 MG/M2, QD (DAY 1 TO 7)
     Route: 042
     Dates: start: 20120224
  10. POSACONAZOLE [Suspect]
     Active Substance: POSACONAZOLE
     Dosage: UNK
     Route: 065
     Dates: start: 20120329
  11. POSACONAZOLE [Suspect]
     Active Substance: POSACONAZOLE
     Dosage: UNK
     Route: 065
     Dates: start: 20120501
  12. VORICONAZOLE. [Suspect]
     Active Substance: VORICONAZOLE
     Dosage: UNK
     Route: 065
     Dates: start: 20120501
  13. IDARUBICIN [Suspect]
     Active Substance: IDARUBICIN
     Dosage: 12 MG/M2, QD (DAY 1 TO 2)
     Route: 042
     Dates: start: 20120329
  14. FLUDARABINE [Suspect]
     Active Substance: FLUDARABINE PHOSPHATE
     Indication: ACUTE MYELOID LEUKAEMIA
     Dosage: 30 MG/M2, QD (DAY 1 TO 5)
     Route: 042
     Dates: start: 20131002
  15. CYTARABINE. [Suspect]
     Active Substance: CYTARABINE
     Dosage: 2000 MG/M2, QD (DAY 1 TO 5)
     Route: 042
     Dates: start: 20131002
  16. CYTARABINE. [Suspect]
     Active Substance: CYTARABINE
     Dosage: 1000 MG/M2, BID (DAY 1, 3, 5)
     Route: 042
     Dates: start: 20120329
  17. POSACONAZOLE [Suspect]
     Active Substance: POSACONAZOLE
     Dosage: 200 MG, TID
     Route: 065
     Dates: start: 20131002

REACTIONS (2)
  - Death [Fatal]
  - Acute myeloid leukaemia recurrent [Not Recovered/Not Resolved]

NARRATIVE: CASE EVENT DATE: 20131024
